FAERS Safety Report 16018977 (Version 3)
Quarter: 2019Q3

REPORT INFORMATION
  Report Type: Report from Study
  Country: US (occurrence: US)
  Receive Date: 20190228
  Receipt Date: 20190816
  Transmission Date: 20191004
  Serious: Yes (Hospitalization)
  Sender: FDA-Public Use
  Company Number: US-BIOGEN-2019BI00701373

PATIENT
  Age: 38 Year
  Sex: Female

DRUGS (4)
  1. TYSABRI [Suspect]
     Active Substance: NATALIZUMAB
     Route: 042
     Dates: start: 201704
  2. TYSABRI [Suspect]
     Active Substance: NATALIZUMAB
     Dosage: INFUSED OVER ONE HOUR
     Route: 050
     Dates: end: 201812
  3. TYSABRI [Suspect]
     Active Substance: NATALIZUMAB
     Indication: MULTIPLE SCLEROSIS
     Dosage: INFUSION OVER 1 HOUR
     Route: 050
     Dates: start: 20170420
  4. TYSABRI [Suspect]
     Active Substance: NATALIZUMAB
     Route: 050
     Dates: end: 20181107

REACTIONS (6)
  - Aphasia [Not Recovered/Not Resolved]
  - Hemiplegia [Not Recovered/Not Resolved]
  - Muscle spasms [Not Recovered/Not Resolved]
  - Hemiparesis [Not Recovered/Not Resolved]
  - Fall [Recovered/Resolved]
  - Multiple sclerosis relapse [Not Recovered/Not Resolved]

NARRATIVE: CASE EVENT DATE: 20190217
